FAERS Safety Report 5288221-X (Version None)
Quarter: 2007Q2

REPORT INFORMATION
  Report Type: 
  Country: None (occurrence: None)
  Receive Date: 20070405
  Receipt Date: 20070326
  Transmission Date: 20071010
  Serious: Yes (Hospitalization)
  Sender: FDA-Public Use
  Company Number: US-JNJFOC-20070306174

PATIENT
  Sex: Female
  Weight: 128.82 kg

DRUGS (3)
  1. RISPERDAL [Suspect]
     Route: 048
  2. RISPERDAL [Suspect]
     Indication: PARANOIA
     Route: 048
  3. KLONIPIN [Concomitant]
     Indication: ANXIETY
     Route: 048

REACTIONS (3)
  - HOSPITALISATION [None]
  - HYPERSOMNIA [None]
  - INCREASED APPETITE [None]
